FAERS Safety Report 15765692 (Version 1)
Quarter: 2018Q4

REPORT INFORMATION
  Report Type: Spontaneous
  Country: US (occurrence: US)
  Receive Date: 20181227
  Receipt Date: 20181227
  Transmission Date: 20190205
  Serious: Yes (Disabling)
  Sender: FDA-Public Use
  Company Number: None

PATIENT
  Age: 67 Year
  Sex: Female
  Weight: 54.9 kg

DRUGS (5)
  1. CITRACAL SR [Concomitant]
  2. PAPAYA SEEDS ASHWAGANDHA [Concomitant]
  3. BIOTIN [Concomitant]
     Active Substance: BIOTIN
  4. ASPIRIN. [Concomitant]
     Active Substance: ASPIRIN
  5. PROLIA [Suspect]
     Active Substance: DENOSUMAB
     Indication: OSTEOPENIA
     Route: 030
     Dates: start: 20181205

REACTIONS (13)
  - Axillary pain [None]
  - Pain in extremity [None]
  - Musculoskeletal pain [None]
  - Asthenia [None]
  - Dyspnoea [None]
  - Bone pain [None]
  - Back pain [None]
  - Fatigue [None]
  - Myalgia [None]
  - Rash [None]
  - Chest pain [None]
  - Paraesthesia [None]
  - Dysuria [None]

NARRATIVE: CASE EVENT DATE: 20181206
